FAERS Safety Report 8036283-9 (Version None)
Quarter: 2012Q1

REPORT INFORMATION
  Report Type: 
  Country: None (occurrence: None)
  Receive Date: 20120111
  Receipt Date: 20120106
  Transmission Date: 20120608
  Serious: Yes (Other)
  Sender: FDA-Public Use
  Company Number: PHFR2012GB000541

PATIENT
  Sex: Female

DRUGS (5)
  1. CARBAMAZEPINE [Concomitant]
     Dosage: UNK UKN, UNK
  2. CLOZARIL [Suspect]
     Dosage: 200 MG
  3. CLOZARIL [Suspect]
     Indication: SCHIZOPHRENIA
     Dosage: UNK UKN, UNK
     Route: 048
     Dates: start: 20000823
  4. CLOZARIL [Suspect]
     Dosage: 825 MG
  5. CLOZARIL [Suspect]
     Dosage: 625 MG

REACTIONS (5)
  - DIZZINESS [None]
  - ANTIPSYCHOTIC DRUG LEVEL INCREASED [None]
  - BALANCE DISORDER [None]
  - MALAISE [None]
  - INCORRECT DOSE ADMINISTERED [None]
